FAERS Safety Report 9325923 (Version 1)
Quarter: 2013Q2

REPORT INFORMATION
  Report Type: Spontaneous
  Country: GB (occurrence: GB)
  Receive Date: 20130604
  Receipt Date: 20130604
  Transmission Date: 20140414
  Serious: Yes (Hospitalization)
  Sender: FDA-Public Use
  Company Number: GB-TARO PHARMACEUTICALS U.S.A., INC-2013SUN00663

PATIENT
  Age: 73 Year
  Sex: Female

DRUGS (1)
  1. ETODOLAC [Suspect]
     Indication: POLYARTHRITIS
     Dosage: 600 MG, BID
     Route: 065

REACTIONS (2)
  - Encephalopathy [Recovered/Resolved]
  - Acute hepatic failure [Recovered/Resolved]
